FAERS Safety Report 9921938 (Version 2)
Quarter: 2014Q2

REPORT INFORMATION
  Report Type: Report from Study
  Country: FR (occurrence: FR)
  Receive Date: 20140225
  Receipt Date: 20140602
  Transmission Date: 20141212
  Serious: Yes (Death, Other)
  Sender: FDA-Public Use
  Company Number: FR-ACORDA-ACO_101788_2014

PATIENT
  Age: 51 Year
  Sex: Male
  Weight: 66 kg

DRUGS (2)
  1. FAMPYRA [Suspect]
     Indication: MULTIPLE SCLEROSIS
     Dosage: 10 MG, BID
     Route: 048
     Dates: start: 20130626, end: 201312
  2. BACLOFEN [Concomitant]
     Indication: MUSCLE SPASTICITY
     Dosage: UNK
     Route: 065

REACTIONS (1)
  - Completed suicide [Fatal]
